FAERS Safety Report 5803059-X (Version None)
Quarter: 2008Q3

REPORT INFORMATION
  Report Type: 
  Country: None (occurrence: None)
  Receive Date: 20080708
  Receipt Date: 20080630
  Transmission Date: 20090109
  Serious: Yes (Other)
  Sender: FDA-Public Use
  Company Number: FR-ASTRAZENECA-2008CG01011

PATIENT
  Age: 22444 Day
  Sex: Female

DRUGS (3)
  1. ARIMIDEX [Suspect]
     Indication: BREAST CANCER
     Route: 048
     Dates: start: 20070328
  2. LEVOTHYROX [Concomitant]
     Dates: start: 19870101
  3. DAFLON [Concomitant]

REACTIONS (1)
  - SKIN INDURATION [None]
